FAERS Safety Report 20540693 (Version 1)
Quarter: 2022Q1

REPORT INFORMATION
  Report Type: Spontaneous
  Country: CN (occurrence: CN)
  Receive Date: 20220302
  Receipt Date: 20220302
  Transmission Date: 20220423
  Serious: Yes (Life-Threatening, Hospitalization)
  Sender: FDA-Public Use
  Company Number: CN-BAYER-2021A222682

PATIENT
  Age: 56 Year
  Sex: Female

DRUGS (1)
  1. XARELTO [Suspect]
     Active Substance: RIVAROXABAN
     Indication: Nephrotic syndrome
     Dosage: 15 MG, QD
     Route: 048
     Dates: start: 20210906, end: 20210922

REACTIONS (4)
  - Subarachnoid haemorrhage [Recovering/Resolving]
  - Palpitations [Recovering/Resolving]
  - Muscle twitching [Recovering/Resolving]
  - Off label use [Unknown]

NARRATIVE: CASE EVENT DATE: 20210906
